FAERS Safety Report 20838925 (Version 2)
Quarter: 2022Q2

REPORT INFORMATION
  Report Type: Spontaneous
  Country: US (occurrence: US)
  Receive Date: 20220517
  Receipt Date: 20220520
  Transmission Date: 20220721
  Serious: Yes (Other)
  Sender: FDA-Public Use
  Company Number: US-ChurchDwight-2022-CDW-00126

PATIENT

DRUGS (1)
  1. ZICAM EXTREME CONGESTION RELIEF [Suspect]
     Active Substance: OXYMETAZOLINE HYDROCHLORIDE
     Indication: Nasal congestion
     Dosage: UNKNOWN
     Route: 045

REACTIONS (5)
  - Drug dependence [Unknown]
  - Nasal inflammation [Unknown]
  - Therapeutic product effect decreased [Unknown]
  - Rebound nasal congestion [Unknown]
  - Intentional product use issue [Unknown]
